FAERS Safety Report 6017552-0 (Version None)
Quarter: 2008Q4

REPORT INFORMATION
  Report Type: 
  Country: None (occurrence: None)
  Receive Date: 20081223
  Receipt Date: 20081210
  Transmission Date: 20090506
  Serious: Yes (Other)
  Sender: FDA-Public Use
  Company Number: ES-BAYER-200832802GPV

PATIENT
  Age: 20 Month
  Sex: Female

DRUGS (1)
  1. ASPIRIN [Suspect]
     Indication: PYREXIA
     Route: 065

REACTIONS (9)
  - HYPOTONIA [None]
  - LENNOX-GASTAUT SYNDROME [None]
  - LOSS OF CONSCIOUSNESS [None]
  - MUSCLE RIGIDITY [None]
  - NASOPHARYNGITIS [None]
  - PYREXIA [None]
  - REYE'S SYNDROME [None]
  - STATUS EPILEPTICUS [None]
  - VOMITING [None]
